FAERS Safety Report 9770184 (Version 1)
Quarter: 2013Q4

REPORT INFORMATION
  Report Type: Spontaneous
  Country: TR (occurrence: TR)
  Receive Date: 20131218
  Receipt Date: 20131218
  Transmission Date: 20140711
  Serious: Yes (Other)
  Sender: FDA-Public Use
  Company Number: TR-TEVA-451145ISR

PATIENT
  Sex: 0

DRUGS (3)
  1. CISPLATIN [Suspect]
     Dosage: 20 MG/M2 DAILY; 20 MG/M2 ON DAYS 1 TO 5
  2. ETOPOSIDE [Suspect]
     Dosage: 100 MG/KG ON DAYS 1 TO 5
  3. BLEOMYCIN [Suspect]
     Dosage: 30 MILLIGRAM DAILY; 30 MG ON DAYS 2, 9 AND 16

REACTIONS (1)
  - Renal failure chronic [Unknown]
